FAERS Safety Report 5519316-0 (Version None)
Quarter: 2007Q4

REPORT INFORMATION
  Report Type: 
  Country: None (occurrence: None)
  Receive Date: 20071116
  Receipt Date: 20071105
  Transmission Date: 20080405
  Serious: Yes (Other)
  Sender: FDA-Public Use
  Company Number: CH-AMGEN-UK251448

PATIENT

DRUGS (3)
  1. KINERET [Suspect]
     Indication: DRUG LEVEL
     Route: 058
  2. UNSPECIFIED ANTIDIABETIC AGENT [Concomitant]
     Route: 065
  3. UNSPECIFIED ANTIHYPERTENSIVE AGENT [Concomitant]
     Route: 065

REACTIONS (7)
  - ASPARTATE AMINOTRANSFERASE INCREASED [None]
  - FACIAL PALSY [None]
  - INJECTION SITE HAEMATOMA [None]
  - INJECTION SITE REACTION [None]
  - NAUSEA [None]
  - UPPER RESPIRATORY TRACT INFECTION [None]
  - URINARY TRACT INFECTION [None]
